FAERS Safety Report 4754862-9 (Version None)
Quarter: 2005Q3

REPORT INFORMATION
  Report Type: 
  Country: None (occurrence: None)
  Receive Date: 20050829
  Receipt Date: 20050414
  Transmission Date: 20060218
  Serious: Yes (Hospitalization)
  Sender: FDA-Public Use
  Company Number: US-MERCK-0504USA02818

PATIENT
  Sex: Female

DRUGS (7)
  1. VIOXX [Suspect]
     Indication: ARTHRALGIA
     Route: 048
  2. ECOTRIN [Concomitant]
     Route: 048
  3. LIPITOR [Concomitant]
     Route: 048
  4. DIOVAN [Concomitant]
     Route: 048
  5. TIAZAC [Concomitant]
     Route: 048
  6. ADVAIR DISKUS 100/50 [Concomitant]
     Route: 055
  7. VICODIN [Concomitant]
     Route: 065

REACTIONS (10)
  - ADVERSE EVENT [None]
  - ANGINA PECTORIS [None]
  - BLOOD TESTOSTERONE INCREASED [None]
  - CHEST PAIN [None]
  - DYSPNOEA [None]
  - ENLARGED CLITORIS [None]
  - HIRSUTISM [None]
  - INJURY [None]
  - REFUSAL OF TREATMENT BY PATIENT [None]
  - VOCAL CORD THICKENING [None]
